FAERS Safety Report 11824497 (Version 4)
Quarter: 2016Q1

REPORT INFORMATION
  Report Type: Spontaneous
  Country: JP (occurrence: JP)
  Receive Date: 20151210
  Receipt Date: 20160121
  Transmission Date: 20160525
  Serious: Yes (Other)
  Sender: FDA-Public Use
  Company Number: PHHY2015JP160029

PATIENT
  Age: 30 Year
  Sex: Female

DRUGS (2)
  1. REGITIN [Concomitant]
     Indication: CARDIOMYOPATHY
     Route: 042
  2. PROPRANOLOL [Suspect]
     Active Substance: PROPRANOLOL\PROPRANOLOL HYDROCHLORIDE
     Indication: CARDIOMYOPATHY
     Route: 065

REACTIONS (2)
  - Pulseless electrical activity [Unknown]
  - Ventricular tachycardia [Unknown]
